FAERS Safety Report 8589782-5 (Version None)
Quarter: 2012Q3

REPORT INFORMATION
  Report Type: 
  Country: None (occurrence: None)
  Receive Date: 20120813
  Receipt Date: 20120801
  Transmission Date: 20120928
  Serious: Yes (Other)
  Sender: FDA-Public Use
  Company Number: US-ROCHE-1095976

PATIENT
  Sex: Male

DRUGS (1)
  1. ACTIVASE [Suspect]
     Indication: ISCHAEMIC STROKE

REACTIONS (4)
  - BRAIN OEDEMA [None]
  - SPEECH DISORDER [None]
  - MONOPARESIS [None]
  - DYSPHAGIA [None]
